FAERS Safety Report 5306299-1 (Version None)
Quarter: 2007Q2

REPORT INFORMATION
  Report Type: 
  Country: None (occurrence: None)
  Receive Date: 20070424
  Receipt Date: 20070411
  Transmission Date: 20071010
  Serious: Yes (Hospitalization, Other)
  Sender: FDA-Public Use
  Company Number: US-ELI_LILLY_AND_COMPANY-US200704002423

PATIENT
  Age: 17 Year
  Sex: Male

DRUGS (4)
  1. CYMBALTA [Suspect]
     Indication: ATTENTION DEFICIT/HYPERACTIVITY DISORDER
     Dosage: 60 MG, DAILY (1/D)
  2. ZOFRAN [Concomitant]
  3. CHEMOTHERAPEUTICS NOS [Concomitant]
  4. MORPHINE [Concomitant]

REACTIONS (4)
  - ACUTE LYMPHOCYTIC LEUKAEMIA [None]
  - MENINGITIS BACTERIAL [None]
  - PNEUMONIA PRIMARY ATYPICAL [None]
  - SKIN LESION [None]
